FAERS Safety Report 17699309 (Version 1)
Quarter: 2020Q2

REPORT INFORMATION
  Report Type: Spontaneous
  Country: US (occurrence: US)
  Receive Date: 20200423
  Receipt Date: 20200423
  Transmission Date: 20200714
  Serious: Yes (Disabling)
  Sender: FDA-Public Use
  Company Number: None

PATIENT
  Age: 33 Year
  Sex: Male
  Weight: 67.5 kg

DRUGS (2)
  1. MULTIVITAMIN [Concomitant]
     Active Substance: VITAMINS
  2. FINASTERIDE 1MG [Suspect]
     Active Substance: FINASTERIDE
     Indication: ALOPECIA
     Route: 048

REACTIONS (5)
  - Anxiety [None]
  - Insomnia [None]
  - Muscle twitching [None]
  - Vision blurred [None]
  - Loss of libido [None]

NARRATIVE: CASE EVENT DATE: 20190310
